FAERS Safety Report 7427223-1 (Version None)
Quarter: 2011Q2

REPORT INFORMATION
  Report Type: 
  Country: None (occurrence: None)
  Receive Date: 20110420
  Receipt Date: 20110415
  Transmission Date: 20111010
  Serious: Yes (Other)
  Sender: FDA-Public Use
  Company Number: US-PFIZER INC-2011043973

PATIENT
  Sex: Female
  Weight: 54.42 kg

DRUGS (2)
  1. NEURONTIN [Suspect]
     Indication: CONVULSION
     Dosage: UNK
     Route: 048
     Dates: start: 20070101
  2. VITAMIN D [Concomitant]
     Dosage: UNK

REACTIONS (2)
  - HYPERTENSION [None]
  - PRODUCT TASTE ABNORMAL [None]
